FAERS Safety Report 21985591 (Version 3)
Quarter: 2023Q2

REPORT INFORMATION
  Report Type: Report from Study
  Country: IT (occurrence: IT)
  Receive Date: 20230213
  Receipt Date: 20230623
  Transmission Date: 20230722
  Serious: Yes (Hospitalization, Other)
  Sender: FDA-Public Use
  Company Number: IT-002147023-NVSC2023IT028149

PATIENT
  Age: 63 Year
  Sex: Female
  Weight: 48 kg

DRUGS (3)
  1. MEKINIST [Suspect]
     Active Substance: TRAMETINIB DIMETHYL SULFOXIDE
     Indication: Neoplasm malignant
     Dosage: 2 MG
     Route: 048
     Dates: start: 20221225, end: 20230111
  2. MEKINIST [Suspect]
     Active Substance: TRAMETINIB DIMETHYL SULFOXIDE
     Dosage: 1.5 MG
     Route: 048
     Dates: start: 20230203, end: 20230501
  3. MEKINIST [Suspect]
     Active Substance: TRAMETINIB DIMETHYL SULFOXIDE
     Dosage: 1 MG
     Route: 065
     Dates: start: 20230502

REACTIONS (3)
  - Folliculitis [Recovered/Resolved]
  - Skin toxicity [Unknown]
  - Folliculitis [Recovered/Resolved]

NARRATIVE: CASE EVENT DATE: 20230108
